FAERS Safety Report 12824545 (Version 2)
Quarter: 2016Q4

REPORT INFORMATION
  Report Type: Spontaneous
  Country: US (occurrence: US)
  Receive Date: 20161007
  Receipt Date: 20161227
  Transmission Date: 20170207
  Serious: Yes (Hospitalization, Other)
  Sender: FDA-Public Use
  Company Number: US-PFIZER INC-2016464431

PATIENT
  Age: 52 Year
  Sex: Female

DRUGS (3)
  1. RELPAX [Suspect]
     Active Substance: ELETRIPTAN HYDROBROMIDE
     Indication: MIGRAINE
     Dosage: UNK
     Route: 048
     Dates: end: 201607
  2. BIESTROGEN [Concomitant]
     Indication: MENOPAUSE
     Dosage: 1.95 MG, DAILY
     Route: 061
  3. RELPAX [Suspect]
     Active Substance: ELETRIPTAN HYDROBROMIDE
     Dosage: 40 MG, AS NEEDED
     Route: 048
     Dates: end: 201609

REACTIONS (15)
  - Raynaud^s phenomenon [Recovered/Resolved]
  - Chest discomfort [Recovered/Resolved]
  - Hypoaesthesia oral [Recovering/Resolving]
  - Drug intolerance [Unknown]
  - Loss of consciousness [Recovered/Resolved]
  - Cardiovascular disorder [Recovering/Resolving]
  - Intranasal paraesthesia [Recovering/Resolving]
  - Dizziness [Recovered/Resolved]
  - Pain in extremity [Not Recovered/Not Resolved]
  - Intentional product misuse [Unknown]
  - Paraesthesia [Recovering/Resolving]
  - Chest pain [Recovered/Resolved]
  - Peripheral coldness [Not Recovered/Not Resolved]
  - Dyspnoea [Recovered/Resolved]
  - Hypotension [Recovered/Resolved]

NARRATIVE: CASE EVENT DATE: 1998
